FAERS Safety Report 24339862 (Version 1)
Quarter: 2024Q3

REPORT INFORMATION
  Report Type: Spontaneous
  Country: US (occurrence: US)
  Receive Date: 20240919
  Receipt Date: 20240919
  Transmission Date: 20241017
  Serious: No
  Sender: PFIZER
  Company Number: US-PFIZER INC-PV202400121454

PATIENT
  Age: 49 Year
  Sex: Female

DRUGS (2)
  1. INLYTA [Suspect]
     Active Substance: AXITINIB
     Dosage: 5 MG, 2X/DAY (TWICE DAILY)
  2. INLYTA [Suspect]
     Active Substance: AXITINIB
     Dosage: 5 MG, 1X/DAY (ONCE DAILY)

REACTIONS (5)
  - Oral discomfort [Recovering/Resolving]
  - Eating disorder [Recovering/Resolving]
  - Mastication disorder [Recovering/Resolving]
  - Urticaria [Recovering/Resolving]
  - Off label use [Unknown]
